FAERS Safety Report 5403904-6 (Version None)
Quarter: 2007Q3

REPORT INFORMATION
  Report Type: 
  Country: None (occurrence: None)
  Receive Date: 20070731
  Receipt Date: 20070731
  Transmission Date: 20080115
  Serious: Yes (Hospitalization)
  Sender: FDA-Public Use
  Company Number: None

PATIENT
  Age: 58 Year
  Sex: Male

DRUGS (1)
  1. CLONIDINE [Suspect]
     Indication: HYPERTENSION
     Dosage: 0.2MG TID PO
     Route: 048
     Dates: start: 20070621, end: 20070627

REACTIONS (3)
  - BRADYCARDIA [None]
  - DYSPNOEA [None]
  - FATIGUE [None]
